FAERS Safety Report 10542880 (Version 1)
Quarter: 2014Q4

REPORT INFORMATION
  Report Type: Report from Study
  Country: CO (occurrence: CO)
  Receive Date: 20141027
  Receipt Date: 20141027
  Transmission Date: 20150529
  Serious: Yes (Other)
  Sender: FDA-Public Use
  Company Number: CO-ROCHE-1479035

PATIENT
  Age: 57 Year
  Sex: Male
  Weight: 82 kg

DRUGS (1)
  1. RANIBIZUMAB [Suspect]
     Active Substance: RANIBIZUMAB
     Indication: INFECTION
     Route: 050

REACTIONS (4)
  - Blindness unilateral [Unknown]
  - Eye inflammation [Unknown]
  - Eye infection [Unknown]
  - Off label use [Unknown]

NARRATIVE: CASE EVENT DATE: 20141005
